FAERS Safety Report 16011671 (Version 2)
Quarter: 2019Q2

REPORT INFORMATION
  Report Type: Spontaneous
  Country: US (occurrence: US)
  Receive Date: 20190227
  Receipt Date: 20190424
  Transmission Date: 20190711
  Serious: No
  Sender: FDA-Public Use
  Company Number: US-PFIZER INC-2019077878

PATIENT
  Age: 53 Year
  Sex: Female
  Weight: 73.48 kg

DRUGS (8)
  1. DESVENLAFAXINE SUCCINATE MONOHYDRATE [Suspect]
     Active Substance: DESVENLAFAXINE SUCCINATE
     Indication: DEPRESSION
     Dosage: 1 DF, 1X/DAY
     Route: 048
     Dates: start: 2017
  2. WELLBUTRIN XL [Concomitant]
     Active Substance: BUPROPION HYDROCHLORIDE
     Dosage: 300 MG, DAILY (1 A ADAY)
     Dates: start: 2015
  3. AMLODIPINE BESYLATE. [Concomitant]
     Active Substance: AMLODIPINE BESYLATE
     Dosage: 5 MG, DAILY (1 A ADAY)
     Dates: start: 2015
  4. ALPRAZOLAM. [Concomitant]
     Active Substance: ALPRAZOLAM
     Dosage: 3 MG, DAILY (3 A DAY)
     Dates: start: 1999
  5. DOMPERIDONE [Concomitant]
     Active Substance: DOMPERIDONE
     Dosage: 10 MG, 4X/DAY
     Dates: start: 2019
  6. DESVENLAFAXINE SUCCINATE MONOHYDRATE [Suspect]
     Active Substance: DESVENLAFAXINE SUCCINATE
     Dosage: 100 MG, 1X/DAY
     Dates: start: 2017
  7. VALATREX HCL [Concomitant]
     Dosage: 1 G, DAILY (1 A ADAY)
     Dates: start: 2009
  8. OXYCODONE [Concomitant]
     Active Substance: OXYCODONE
     Dosage: 3 DF, DAILY (10-325 3 A DAY)
     Dates: start: 2009

REACTIONS (2)
  - Emotional disorder [Unknown]
  - Malaise [Not Recovered/Not Resolved]

NARRATIVE: CASE EVENT DATE: 2019
